FAERS Safety Report 25014004 (Version 1)
Quarter: 2025Q1

REPORT INFORMATION
  Report Type: Spontaneous
  Country: FR (occurrence: FR)
  Receive Date: 20250226
  Receipt Date: 20250226
  Transmission Date: 20250409
  Serious: Yes (Life-Threatening)
  Sender: PFIZER
  Company Number: None

PATIENT
  Age: 73 Year
  Sex: Female
  Weight: 63 kg

DRUGS (2)
  1. MEROPENEM [Suspect]
     Active Substance: MEROPENEM
     Dosage: 1500 MG, DAILY
     Dates: start: 20241213, end: 20241218
  2. MEROPENEM [Suspect]
     Active Substance: MEROPENEM
     Dosage: 2000 MG, DAILY
     Dates: start: 20241219, end: 20241220

REACTIONS (2)
  - Overdose [Unknown]
  - Confusional state [Recovered/Resolved]

NARRATIVE: CASE EVENT DATE: 20241218
